FAERS Safety Report 5190660-2 (Version None)
Quarter: 2006Q4

REPORT INFORMATION
  Report Type: 
  Country: None (occurrence: None)
  Receive Date: 20061222
  Receipt Date: 20061106
  Transmission Date: 20070319
  Serious: No
  Sender: FDA-Public Use
  Company Number: US-BRISTOL-MYERS SQUIBB COMPANY-13566872

PATIENT
  Age: 73 Year
  Sex: Female
  Weight: 79 kg

DRUGS (8)
  1. ORENCIA [Suspect]
     Indication: RHEUMATOID ARTHRITIS
     Route: 042
     Dates: start: 20060823
  2. METHOTREXATE [Concomitant]
  3. ZETIA [Concomitant]
  4. FOLIC ACID [Concomitant]
  5. CALCIUM [Concomitant]
  6. ESTROVEN [Concomitant]
  7. FISH OIL [Concomitant]
  8. LUTEIN [Concomitant]

REACTIONS (3)
  - PRURITUS [None]
  - RASH [None]
  - STOMATITIS [None]
